FAERS Safety Report 7960386-8 (Version None)
Quarter: 2011Q4

REPORT INFORMATION
  Report Type: 
  Country: None (occurrence: None)
  Receive Date: 20111206
  Receipt Date: 20111130
  Transmission Date: 20120403
  Serious: Yes (Hospitalization)
  Sender: FDA-Public Use
  Company Number: US-JNJFOC-20111200390

PATIENT
  Sex: Female

DRUGS (1)
  1. FLEXERIL [Suspect]
     Indication: PAIN
     Route: 048
     Dates: start: 19980101

REACTIONS (7)
  - SCOLIOSIS [None]
  - MUSCLE SPASMS [None]
  - BACK PAIN [None]
  - INTERVERTEBRAL DISC PROTRUSION [None]
  - THYROID CANCER [None]
  - BLOOD CHOLESTEROL INCREASED [None]
  - FLANK PAIN [None]
